FAERS Safety Report 7254395-4 (Version None)
Quarter: 2011Q1

REPORT INFORMATION
  Report Type: 
  Country: None (occurrence: None)
  Receive Date: 20110129
  Receipt Date: 20100419
  Transmission Date: 20110831
  Serious: No
  Sender: FDA-Public Use
  Company Number: US-ABBOTT-10P-163-0640481-00

PATIENT
  Sex: Female
  Weight: 55.388 kg

DRUGS (2)
  1. HUMIRA [Suspect]
     Indication: CROHN'S DISEASE
     Dates: start: 20090521
  2. LIALDA [Concomitant]
     Indication: CROHN'S DISEASE

REACTIONS (3)
  - ERYSIPELAS [None]
  - SKIN EXFOLIATION [None]
  - OTORRHOEA [None]
